FAERS Safety Report 13393755 (Version 14)
Quarter: 2017Q3

REPORT INFORMATION
  Report Type: Spontaneous
  Country: AR (occurrence: AR)
  Receive Date: 20170331
  Receipt Date: 20170927
  Transmission Date: 20171127
  Serious: Yes (Hospitalization, Congenital Anomaly, Other)
  Sender: FDA-Public Use
  Company Number: AR-ALEXION PHARMACEUTICALS INC-A201702887

PATIENT
  Age: 6 Month
  Sex: Female
  Weight: 5.36 kg

DRUGS (21)
  1. STRENSIQ [Suspect]
     Active Substance: ASFOTASE ALFA
     Indication: HYPOPHOSPHATASIA
     Dosage: 2 MG/KG, TIW
     Route: 058
     Dates: start: 20170309
  2. ZINC SULFATE [Concomitant]
     Active Substance: ZINC SULFATE\ZINC SULFATE ANHYDROUS
     Dosage: 12 DROPS/DAY
     Route: 065
  3. COPPER SULFATE [Concomitant]
     Active Substance: CUPRIC SULFATE ANHYDROUS
     Indication: PRODUCT USED FOR UNKNOWN INDICATION
     Dosage: 12 DROPS, QD
     Route: 065
  4. ACD-A [Concomitant]
     Active Substance: ANHYDROUS CITRIC ACID\DEXTROSE MONOHYDRATE\SODIUM CITRATE
     Dosage: 0.3 ML, QD
     Route: 065
  5. FOLIC ACID. [Concomitant]
     Active Substance: FOLIC ACID
     Dosage: 4 DROP PER DAY
     Route: 065
  6. SULFAMETHOXAZOLE AND TRIMETHOPRIM [Concomitant]
     Active Substance: SULFAMETHOXAZOLE\TRIMETHOPRIM
     Indication: PROPHYLAXIS
     Dosage: 2MG/ KG/DAY
     Route: 065
  7. ACD-A [Concomitant]
     Active Substance: ANHYDROUS CITRIC ACID\DEXTROSE MONOHYDRATE\SODIUM CITRATE
     Indication: PRODUCT USED FOR UNKNOWN INDICATION
     Dosage: 0.6 ML, QD
     Route: 065
  8. COPPER SULPHATE [Concomitant]
     Active Substance: CUPRIC SULFATE ANHYDROUS
     Indication: PRODUCT USED FOR UNKNOWN INDICATION
     Dosage: 0.5 ML, QD
     Route: 065
  9. ZINC SULFATE [Concomitant]
     Active Substance: ZINC SULFATE\ZINC SULFATE ANHYDROUS
     Dosage: 5 ML, QD
     Route: 065
  10. FOLIC ACID. [Concomitant]
     Active Substance: FOLIC ACID
     Indication: PRODUCT USED FOR UNKNOWN INDICATION
     Dosage: 1 ML, QD
     Route: 065
  11. LEVOTHYROXINE. [Concomitant]
     Active Substance: LEVOTHYROXINE
     Dosage: 25 ?G, QD
     Route: 065
  12. LEVOTHYROXINE. [Concomitant]
     Active Substance: LEVOTHYROXINE
     Dosage: 50 ?L, QD
     Route: 065
  13. LEVOTHYROXINE. [Concomitant]
     Active Substance: LEVOTHYROXINE
     Indication: PRODUCT USED FOR UNKNOWN INDICATION
     Dosage: 12.5 ?G, QD
     Route: 065
  14. LEVOTHYROXINE. [Concomitant]
     Active Substance: LEVOTHYROXINE
     Dosage: 50 ?G, UNK
     Route: 065
  15. ZINC SULFATE [Concomitant]
     Active Substance: ZINC SULFATE\ZINC SULFATE ANHYDROUS
     Indication: PRODUCT USED FOR UNKNOWN INDICATION
     Dosage: 4.5 ML, UNK
     Route: 065
  16. CEFTRIAXONE. [Concomitant]
     Active Substance: CEFTRIAXONE
     Indication: PRODUCT USED FOR UNKNOWN INDICATION
     Dosage: 80 MG/KG, FOR 8 DAYS
     Route: 042
  17. LANZOPRAZOL [Concomitant]
     Active Substance: LANSOPRAZOLE
     Indication: PRODUCT USED FOR UNKNOWN INDICATION
     Dosage: 15 MG, QD
     Route: 065
  18. OMEPRAZOLE. [Concomitant]
     Active Substance: OMEPRAZOLE
     Indication: PRODUCT USED FOR UNKNOWN INDICATION
     Dosage: 5 ML, QD
     Route: 065
  19. FERROUS SULFATE. [Concomitant]
     Active Substance: FERROUS SULFATE
     Indication: PRODUCT USED FOR UNKNOWN INDICATION
     Dosage: 12 DROPS, QD
     Route: 065
  20. SULFAMETHOXAZOLE AND TRIMETHOPRIM [Concomitant]
     Active Substance: SULFAMETHOXAZOLE\TRIMETHOPRIM
     Dosage: 1.5 ML, QD
     Route: 065
  21. POLYETHYLENE GLYCOL [Concomitant]
     Active Substance: POLYETHYLENE GLYCOLS
     Indication: CONSTIPATION
     Dosage: 1 SOBRE/200ML, BID
     Route: 065

REACTIONS (28)
  - Craniosynostosis [Unknown]
  - Pericardial effusion [Recovered/Resolved]
  - Electroencephalogram abnormal [Unknown]
  - Otitis externa [Recovered/Resolved]
  - Eye disorder [Not Recovered/Not Resolved]
  - C-reactive protein increased [Unknown]
  - Congenital neurological disorder [Unknown]
  - Bronchitis [Unknown]
  - Gaze palsy [Not Recovered/Not Resolved]
  - Talipes [Not Recovered/Not Resolved]
  - Gastrooesophageal reflux disease [Unknown]
  - Dysphagia [Unknown]
  - Tachycardia [Recovered/Resolved]
  - Nephrocalcinosis [Unknown]
  - Feeding intolerance [Unknown]
  - Malabsorption [Unknown]
  - Generalised tonic-clonic seizure [Unknown]
  - Retinal degeneration [Not Recovered/Not Resolved]
  - Pallor [Unknown]
  - Pyrexia [Recovered/Resolved]
  - Failure to thrive [Unknown]
  - Urosepsis [Recovered/Resolved]
  - Visual impairment [Not Recovered/Not Resolved]
  - Drug level decreased [Recovered/Resolved]
  - Escherichia urinary tract infection [Recovered/Resolved]
  - Cerebral atrophy [Unknown]
  - Nuclear magnetic resonance imaging abnormal [Unknown]
  - Tachypnoea [Recovered/Resolved]

NARRATIVE: CASE EVENT DATE: 20170317
